FAERS Safety Report 6257418-4 (Version None)
Quarter: 2009Q3

REPORT INFORMATION
  Report Type: 
  Country: None (occurrence: None)
  Receive Date: 20090706
  Receipt Date: 20090624
  Transmission Date: 20100115
  Serious: Yes (Other)
  Sender: FDA-Public Use
  Company Number: US-MERCK-0906USA05061

PATIENT
  Age: 76 Year
  Sex: Female

DRUGS (11)
  1. ZOCOR [Suspect]
     Indication: HYPERCHOLESTEROLAEMIA
     Route: 048
  2. ZOCOR [Suspect]
     Route: 048
  3. SIMVASTATIN [Suspect]
     Indication: HYPERCHOLESTEROLAEMIA
     Route: 048
     Dates: start: 20090101
  4. KEPPRA [Concomitant]
     Route: 065
  5. TRICOR [Concomitant]
     Route: 065
  6. PREMARIN [Concomitant]
     Route: 065
  7. ALTACE [Concomitant]
     Route: 065
  8. SOTALOL HYDROCHLORIDE [Concomitant]
     Route: 065
  9. PLAVIX [Concomitant]
     Route: 065
  10. VITAMINS (UNSPECIFIED) [Concomitant]
     Route: 065
  11. ASPIRIN [Concomitant]
     Route: 065

REACTIONS (3)
  - CARDIAC VALVE DISEASE [None]
  - FEELING ABNORMAL [None]
  - MYALGIA [None]
